FAERS Safety Report 7434666-9 (Version None)
Quarter: 2011Q2

REPORT INFORMATION
  Report Type: 
  Country: None (occurrence: None)
  Receive Date: 20110415
  Receipt Date: 20110404
  Transmission Date: 20111010
  Serious: Yes (Hospitalization, Disabling, Other)
  Sender: FDA-Public Use
  Company Number: GER/UKI/11/0017219

PATIENT
  Age: 62 Year
  Sex: Female

DRUGS (1)
  1. ALENDRONATE SODIUM [Suspect]
     Indication: OSTEOPOROSIS
     Dosage: 70 MG, 1 IN 1 WK, ORAL
     Route: 048
     Dates: start: 20030101

REACTIONS (7)
  - NASAL POLYPS [None]
  - NASAL OBSTRUCTION [None]
  - OSTEONECROSIS OF JAW [None]
  - HYPERCALCAEMIA [None]
  - NASAL CONGESTION [None]
  - OROANTRAL FISTULA [None]
  - LYMPHADENOPATHY [None]
